FAERS Safety Report 19893229 (Version 1)
Quarter: 2021Q3

REPORT INFORMATION
  Report Type: Spontaneous
  Country: US (occurrence: US)
  Receive Date: 20210928
  Receipt Date: 20210928
  Transmission Date: 20211014
  Serious: No
  Sender: FDA-Public Use
  Company Number: US-SA-2021SA317066

PATIENT
  Sex: Female

DRUGS (2)
  1. ROSUVASTATIN. [Interacting]
     Active Substance: ROSUVASTATIN
  2. AUBAGIO [Suspect]
     Active Substance: TERIFLUNOMIDE

REACTIONS (3)
  - Anaemia [Unknown]
  - Labelled drug-drug interaction issue [Unknown]
  - Headache [Unknown]
